FAERS Safety Report 8311158-6 (Version None)
Quarter: 2012Q2

REPORT INFORMATION
  Report Type: 
  Country: None (occurrence: None)
  Receive Date: 20120425
  Receipt Date: 20120215
  Transmission Date: 20120825
  Serious: No
  Sender: FDA-Public Use
  Company Number: US-MYLANLABS-2012S1003867

PATIENT
  Sex: Female

DRUGS (2)
  1. METHADONE HCL [Suspect]
  2. LORAZEPAM [Suspect]

REACTIONS (1)
  - DRUG SCREEN NEGATIVE [None]
